FAERS Safety Report 12010659 (Version 1)
Quarter: 2016Q1

REPORT INFORMATION
  Report Type: Spontaneous
  Country: CH (occurrence: DE)
  Receive Date: 20160205
  Receipt Date: 20160205
  Transmission Date: 20160526
  Serious: Yes (Death, Life-Threatening)
  Sender: FDA-Public Use
  Company Number: CH-LPDUSPRD-20160105

PATIENT
  Age: 58 Year
  Sex: Male

DRUGS (1)
  1. FERINJECT [Suspect]
     Active Substance: FERRIC CARBOXYMALTOSE
     Dosage: 500 MG
     Route: 041
     Dates: start: 201509

REACTIONS (3)
  - Sepsis [Unknown]
  - Anaphylactoid shock [Unknown]
  - Renal cell carcinoma [Fatal]

NARRATIVE: CASE EVENT DATE: 201509
